FAERS Safety Report 24638600 (Version 1)
Quarter: 2024Q4

REPORT INFORMATION
  Report Type: Spontaneous
  Country: CN (occurrence: CN)
  Receive Date: 20241119
  Receipt Date: 20241119
  Transmission Date: 20250115
  Serious: Yes (Other)
  Sender: NOVARTIS
  Company Number: CN-002147023-NVSC2024CN221379

PATIENT
  Age: 56 Year
  Sex: Female
  Weight: 46 kg

DRUGS (2)
  1. SACUBITRIL\VALSARTAN [Suspect]
     Active Substance: SACUBITRIL\VALSARTAN
     Indication: Ventricular remodelling
     Dosage: 150 MG, BID
     Route: 048
     Dates: start: 20241108, end: 20241110
  2. METOPROLOL TARTRATE [Suspect]
     Active Substance: METOPROLOL TARTRATE
     Indication: Oxygen consumption increased
     Dosage: 25 MG, BID
     Route: 048
     Dates: start: 20241108, end: 20241110

REACTIONS (6)
  - Blood pressure decreased [Recovering/Resolving]
  - Dizziness [Recovered/Resolved]
  - Chest discomfort [Recovered/Resolved]
  - Tachypnoea [Recovered/Resolved]
  - Feeling abnormal [Recovering/Resolving]
  - Heart rate decreased [Recovering/Resolving]

NARRATIVE: CASE EVENT DATE: 20241110
